APPROVED DRUG PRODUCT: METFORMIN HYDROCHLORIDE
Active Ingredient: METFORMIN HYDROCHLORIDE
Strength: 500MG
Dosage Form/Route: TABLET;ORAL
Application: A213320 | Product #001 | TE Code: AB
Applicant: HARMAN FINOCHEM LTD
Approved: Dec 3, 2021 | RLD: No | RS: No | Type: RX